FAERS Safety Report 6991195 (Version 74)
Quarter: 2019Q1

REPORT INFORMATION
  Report Type: Report from Study
  Country: CA (occurrence: CA)
  Receive Date: 20090511
  Receipt Date: 20190131
  Transmission Date: 20190418
  Serious: Yes (Hospitalization, Other)
  Sender: FDA-Public Use
  Company Number: PHMT2007CA01366

PATIENT
  Age: 51 Year
  Sex: Female

DRUGS (12)
  1. SCOPOLAMINE [Suspect]
     Active Substance: SCOPOLAMINE
     Indication: PRODUCT USED FOR UNKNOWN INDICATION
     Dosage: UNK, BID
     Route: 065
  2. CALCIUM [Concomitant]
     Active Substance: CALCIUM
     Indication: PRODUCT USED FOR UNKNOWN INDICATION
     Dosage: UNK
     Route: 065
  3. PREVACID [Concomitant]
     Active Substance: LANSOPRAZOLE
     Indication: PRODUCT USED FOR UNKNOWN INDICATION
     Dosage: 30 MG, BID
     Route: 048
  4. PROCHLORPERAZINE. [Concomitant]
     Active Substance: PROCHLORPERAZINE
     Indication: PRODUCT USED FOR UNKNOWN INDICATION
     Dosage: 10 MG, UNK
     Route: 065
  5. STATEX [Concomitant]
     Indication: PAIN
     Dosage: UNK
     Route: 065
  6. OXYCOCET [Concomitant]
     Active Substance: ACETAMINOPHEN\OXYCODONE HYDROCHLORIDE
     Indication: PRODUCT USED FOR UNKNOWN INDICATION
     Dosage: UNK
     Route: 065
  7. CIPRALEX [Concomitant]
     Active Substance: ESCITALOPRAM OXALATE
     Indication: PRODUCT USED FOR UNKNOWN INDICATION
     Dosage: UNK
     Route: 065
  8. IMOVANE [Concomitant]
     Active Substance: ZOPICLONE
     Indication: PRODUCT USED FOR UNKNOWN INDICATION
     Dosage: 3.375 MG, UNK
     Route: 048
  9. ONDANSETRON [Suspect]
     Active Substance: ONDANSETRON
     Indication: PRODUCT USED FOR UNKNOWN INDICATION
     Dosage: 4 MG, Q4H
     Route: 065
  10. DEMEROL [Concomitant]
     Active Substance: MEPERIDINE HYDROCHLORIDE
     Indication: PRODUCT USED FOR UNKNOWN INDICATION
     Dosage: 50 MG, PRN
     Route: 048
  11. SANDOSTATIN LAR DEPOT [Suspect]
     Active Substance: OCTREOTIDE ACETATE
     Indication: PANCREATIC CARCINOMA
     Dosage: 30 MG, EVERY 3 WEEKS
     Route: 030
     Dates: start: 20060626
  12. OXYIR [Concomitant]
     Active Substance: OXYCODONE HYDROCHLORIDE
     Indication: PRODUCT USED FOR UNKNOWN INDICATION
     Dosage: 10 MG, Q4H (1 TO 2 TABS, AS REQUIRED)
     Route: 065

REACTIONS (47)
  - Abdominal infection [Unknown]
  - Insomnia [Not Recovered/Not Resolved]
  - Pain [Recovering/Resolving]
  - Pancreatic carcinoma recurrent [Not Recovered/Not Resolved]
  - Malignant neoplasm progression [Unknown]
  - Gait disturbance [Unknown]
  - Diarrhoea [Recovering/Resolving]
  - Condition aggravated [Recovering/Resolving]
  - Urinary tract infection [Unknown]
  - Anxiety [Unknown]
  - Hyperhidrosis [Unknown]
  - Retching [Unknown]
  - Decreased appetite [Not Recovered/Not Resolved]
  - Thrombosis [Not Recovered/Not Resolved]
  - Pancreatic disorder [Not Recovered/Not Resolved]
  - Arthralgia [Unknown]
  - Abdominal pain lower [Unknown]
  - Blood pressure decreased [Unknown]
  - Eating disorder [Not Recovered/Not Resolved]
  - Abdominal pain [Recovering/Resolving]
  - Pain in extremity [Unknown]
  - Diverticulitis [Unknown]
  - Depression [Unknown]
  - Weight decreased [Unknown]
  - Chest pain [Recovering/Resolving]
  - Foot deformity [Recovering/Resolving]
  - Malaise [Unknown]
  - Dehydration [Unknown]
  - Uterine prolapse [Unknown]
  - Abdominal pain upper [Unknown]
  - Pyrexia [Recovering/Resolving]
  - Foot fracture [Unknown]
  - Pharyngitis streptococcal [Unknown]
  - Colitis [Unknown]
  - Gait inability [Not Recovered/Not Resolved]
  - Vomiting [Unknown]
  - Pancreatitis [Unknown]
  - Nausea [Unknown]
  - Dizziness [Unknown]
  - Cataract [Unknown]
  - Asthenia [Unknown]
  - Headache [Unknown]
  - Nephrolithiasis [Unknown]
  - Back pain [Not Recovered/Not Resolved]
  - Body temperature decreased [Unknown]
  - Thirst [Unknown]
  - Inappropriate schedule of product administration [Unknown]

NARRATIVE: CASE EVENT DATE: 20070528
